FAERS Safety Report 6705701-8 (Version None)
Quarter: 2010Q2

REPORT INFORMATION
  Report Type: 
  Country: None (occurrence: None)
  Receive Date: 20100503
  Receipt Date: 20100428
  Transmission Date: 20101027
  Serious: Yes (Hospitalization)
  Sender: FDA-Public Use
  Company Number: DE-WYE-G06053510

PATIENT
  Sex: Female
  Weight: 80 kg

DRUGS (2)
  1. TREVILOR RETARD [Suspect]
     Dosage: 22 CAPSULES (OVERDOSE AMOUNT 3300 MG)
     Route: 048
     Dates: start: 20100427, end: 20100427
  2. ELONTRIL [Suspect]
     Dosage: 12 TABLETS (OVERDOSE AMOUNT 1800 MG)
     Route: 048
     Dates: start: 20100427, end: 20100427

REACTIONS (4)
  - DEPRESSED LEVEL OF CONSCIOUSNESS [None]
  - DRUG ABUSE [None]
  - INTENTIONAL OVERDOSE [None]
  - TREMOR [None]
